FAERS Safety Report 20481968 (Version 2)
Quarter: 2022Q1

REPORT INFORMATION
  Report Type: Spontaneous
  Country: IT (occurrence: None)
  Receive Date: 20220216
  Receipt Date: 20220313
  Transmission Date: 20220423
  Serious: Yes (Other)
  Sender: FDA-Public Use
  Company Number: IT-ROCHE-3024071

PATIENT
  Sex: Male

DRUGS (1)
  1. ALECENSA [Suspect]
     Active Substance: ALECTINIB HYDROCHLORIDE
     Indication: Non-small cell lung cancer
     Route: 065

REACTIONS (2)
  - Motor neurone disease [Unknown]
  - Dysarthria [Unknown]
